FAERS Safety Report 7677600-9 (Version None)
Quarter: 2011Q3

REPORT INFORMATION
  Report Type: 
  Country: None (occurrence: None)
  Receive Date: 20110811
  Receipt Date: 20110811
  Transmission Date: 20111222
  Serious: Yes (Hospitalization, Other)
  Sender: FDA-Public Use
  Company Number: None

PATIENT
  Sex: Female
  Weight: 68.038 kg

DRUGS (1)
  1. PAROXETINE HCL [Suspect]
     Indication: SOCIAL PHOBIA

REACTIONS (9)
  - NAUSEA [None]
  - MIDDLE INSOMNIA [None]
  - SEXUAL DYSFUNCTION [None]
  - WITHDRAWAL SYNDROME [None]
  - HEART RATE INCREASED [None]
  - ANXIETY [None]
  - DIZZINESS [None]
  - PANIC REACTION [None]
  - DYSPNOEA [None]
